FAERS Safety Report 19051275 (Version 1)
Quarter: 2021Q1

REPORT INFORMATION
  Report Type: Spontaneous
  Country: US (occurrence: US)
  Receive Date: 20210323
  Receipt Date: 20210323
  Transmission Date: 20210420
  Serious: No
  Sender: FDA-Public Use
  Company Number: None

PATIENT
  Age: 45 Year
  Sex: Female

DRUGS (1)
  1. EPCLUSA [Suspect]
     Active Substance: SOFOSBUVIR\VELPATASVIR
     Dosage: OTHER DOSE:400MG/100MG;?
     Route: 048
     Dates: start: 202101

REACTIONS (2)
  - White blood cell count decreased [None]
  - Transplant [None]

NARRATIVE: CASE EVENT DATE: 20210308
